FAERS Safety Report 20135048 (Version 5)
Quarter: 2024Q3

REPORT INFORMATION
  Report Type: Report from Study
  Country: US (occurrence: US)
  Receive Date: 20211201
  Receipt Date: 20240925
  Transmission Date: 20241017
  Serious: No
  Sender: GLAXOSMITHKLINE
  Company Number: US-GLAXOSMITHKLINE-US2021AMR245339

PATIENT
  Age: 76 Year
  Sex: Female

DRUGS (4)
  1. NIRAPARIB [Suspect]
     Active Substance: NIRAPARIB
     Indication: Malignant peritoneal neoplasm
     Dosage: 300 MG, QD
  2. NIRAPARIB [Suspect]
     Active Substance: NIRAPARIB
     Dosage: 200 MG
     Dates: start: 20211102, end: 20211116
  3. NIRAPARIB [Suspect]
     Active Substance: NIRAPARIB
     Dosage: 200 MG, QD
     Route: 048
     Dates: start: 20211130, end: 20211223
  4. NIRAPARIB [Suspect]
     Active Substance: NIRAPARIB
     Dosage: 100 MG, QD
     Route: 048
     Dates: start: 20211230, end: 202201

REACTIONS (12)
  - Nervousness [Recovered/Resolved]
  - Anxiety [Recovered/Resolved]
  - Fall [Unknown]
  - Wrist fracture [Not Recovered/Not Resolved]
  - Arthralgia [Recovered/Resolved]
  - Balance disorder [Not Recovered/Not Resolved]
  - Joint injury [Unknown]
  - Hypertension [Recovering/Resolving]
  - Blood pressure increased [Not Recovered/Not Resolved]
  - Feeling jittery [Recovered/Resolved]
  - Condition aggravated [Recovered/Resolved]
  - Off label use [Unknown]

NARRATIVE: CASE EVENT DATE: 20211115
